FAERS Safety Report 9012202 (Version 4)
Quarter: 2013Q1

REPORT INFORMATION
  Report Type: Spontaneous
  Country: US (occurrence: US)
  Receive Date: 20130114
  Receipt Date: 20130329
  Transmission Date: 20140127
  Serious: No
  Sender: FDA-Public Use
  Company Number: US-009507513-1212USA005622

PATIENT
  Age: 56 Year
  Sex: Male

DRUGS (10)
  1. VICTRELIS [Suspect]
     Indication: HEPATITIS C
     Dosage: 800 MG, TID
     Route: 048
     Dates: start: 20121210, end: 20130228
  2. RIBAVIRIN [Suspect]
     Indication: HEPATITIS C
     Dosage: UNK
     Route: 048
     Dates: start: 20121128, end: 20130221
  3. PEGASYS [Suspect]
     Indication: HEPATITIS C
     Dosage: UNK
     Dates: start: 20121128, end: 20130221
  4. PEGINTRON [Suspect]
     Dosage: UNK
     Dates: start: 20121119
  5. REBETOL [Suspect]
     Dosage: UNK
     Dates: start: 20121119
  6. CYMBALTA [Concomitant]
  7. GLIPIZIDE [Concomitant]
  8. METFORMIN [Concomitant]
  9. TERAZOSIN HYDROCHLORIDE [Concomitant]
  10. PEPCID [Concomitant]

REACTIONS (18)
  - Mental disorder [Unknown]
  - Injection site reaction [Unknown]
  - Malaise [Unknown]
  - Mental disorder [Unknown]
  - Hyperglycaemia [Unknown]
  - Blood glucose increased [Unknown]
  - Fatigue [Unknown]
  - Irritability [Unknown]
  - Decreased appetite [Unknown]
  - Memory impairment [Unknown]
  - Vomiting [Unknown]
  - Haematochezia [Unknown]
  - Anaemia [Unknown]
  - Haemoglobin decreased [Unknown]
  - Fatigue [Unknown]
  - Rash [Unknown]
  - Rash pruritic [Not Recovered/Not Resolved]
  - Rash generalised [Not Recovered/Not Resolved]
